FAERS Safety Report 6010676-3 (Version None)
Quarter: 2008Q4

REPORT INFORMATION
  Report Type: 
  Country: None (occurrence: None)
  Receive Date: 20081216
  Receipt Date: 20081201
  Transmission Date: 20090506
  Serious: Yes (Disabling, Other)
  Sender: FDA-Public Use
  Company Number: GB-DEXPHARM-20081392

PATIENT
  Age: 47 Year
  Sex: Female

DRUGS (6)
  1. OMEPRAZOLE [Suspect]
     Indication: ABDOMINAL PAIN UPPER
     Dosage: 40 MG MILLIGRAM(S), 1 IN 1 DAY ORAL
     Route: 048
     Dates: end: 20081014
  2. AMOXICILLIN [Concomitant]
  3. EPILIM [Concomitant]
  4. FERROUS SULPHATE [Concomitant]
  5. HYOSCINE HBR HYT [Concomitant]
  6. LISINOPRIL [Concomitant]

REACTIONS (1)
  - TENDON RUPTURE [None]
